FAERS Safety Report 7520142-1 (Version None)
Quarter: 2011Q2

REPORT INFORMATION
  Report Type: 
  Country: None (occurrence: None)
  Receive Date: 20110602
  Receipt Date: 20110525
  Transmission Date: 20111010
  Serious: Yes (Hospitalization, Other)
  Sender: FDA-Public Use
  Company Number: US-BAXTER-2011BH012447

PATIENT
  Age: 50 Year
  Sex: Female

DRUGS (2)
  1. DIANEAL [Suspect]
     Indication: PERITONEAL DIALYSIS
     Route: 033
  2. EXTRANEAL [Suspect]
     Indication: PERITONEAL DIALYSIS
     Dosage: DOSE UNIT:
     Route: 033

REACTIONS (5)
  - WOUND [None]
  - INFECTION [None]
  - OSTEODYSTROPHY [None]
  - ANAEMIA [None]
  - CALCIPHYLAXIS [None]
